FAERS Safety Report 15884503 (Version 1)
Quarter: 2019Q1

REPORT INFORMATION
  Report Type: Spontaneous
  Country: US (occurrence: US)
  Receive Date: 20190129
  Receipt Date: 20190129
  Transmission Date: 20190417
  Serious: Yes (Hospitalization)
  Sender: FDA-Public Use
  Company Number: None

PATIENT
  Age: 88 Year
  Sex: Male

DRUGS (12)
  1. CENTRUM TAB SILVER [Concomitant]
  2. DIGOXIN 0.125MG [Concomitant]
  3. PANTOPRAZOLE 20MG [Concomitant]
     Active Substance: PANTOPRAZOLE SODIUM
  4. PRAVASTATIN. [Concomitant]
     Active Substance: PRAVASTATIN
  5. CARVEDILOL 25MG [Concomitant]
     Active Substance: CARVEDILOL
  6. ENALAPRIL 10MG [Concomitant]
     Active Substance: ENALAPRIL
  7. COQ10 100MG [Concomitant]
  8. AMIODARONE 200MG [Concomitant]
     Active Substance: AMIODARONE
  9. LUPRON DEPOT [Suspect]
     Active Substance: LEUPROLIDE ACETATE
     Indication: PROSTATE CANCER
     Dosage: 30 MG EVERY 4 MONTHS INTRAMUSCULAR
     Route: 030
     Dates: start: 20170417
  10. WARFARIN 2.5MG [Concomitant]
     Active Substance: WARFARIN
  11. CALTRATE [Concomitant]
     Active Substance: CALCIUM CARBONATE
  12. RAPAFLO [Concomitant]
     Active Substance: SILODOSIN

REACTIONS (1)
  - Oropharyngeal surgery [None]

NARRATIVE: CASE EVENT DATE: 20190120
